FAERS Safety Report 19221465 (Version 1)
Quarter: 2021Q2

REPORT INFORMATION
  Report Type: Report from Study
  Country: US (occurrence: US)
  Receive Date: 20210505
  Receipt Date: 20210505
  Transmission Date: 20210717
  Serious: Yes (Hospitalization)
  Sender: FDA-Public Use
  Company Number: US-PFIZER INC-2021491889

PATIENT
  Age: 7 Year
  Sex: Male
  Weight: 21.7 kg

DRUGS (7)
  1. OLARATUMAB [Suspect]
     Active Substance: OLARATUMAB
     Dosage: 500 MG, ON DAYS ONE AND DAY EIGHT OF 21 DAY CYCLE
     Route: 042
     Dates: start: 20180430
  2. VIMPAT [Concomitant]
     Active Substance: LACOSAMIDE
     Indication: EPILEPSY
     Dosage: UNK
     Dates: start: 20170630
  3. IRINOTECAN HCL [Suspect]
     Active Substance: IRINOTECAN HYDROCHLORIDE
     Indication: ANAPLASTIC ASTROCYTOMA
     Dosage: 43 MG/M2, ON DAY ONE AND EIGHT OF A 21 DAY CYCLE
     Route: 042
     Dates: start: 20180430
  4. BANZEL [Concomitant]
     Active Substance: RUFINAMIDE
     Indication: MYOCLONIC EPILEPSY
     Dosage: UNK
     Dates: start: 20151222
  5. VINCRISTINE SULFATE. [Suspect]
     Active Substance: VINCRISTINE SULFATE
     Indication: ANAPLASTIC ASTROCYTOMA
     Dosage: 1.3 MG/M2, ON DAY ONE AND DAY EIGHT OF 21 DAY CYCLE
     Route: 042
     Dates: start: 20180430
  6. OLARATUMAB [Suspect]
     Active Substance: OLARATUMAB
     Indication: ANAPLASTIC ASTROCYTOMA
     Dosage: 20 MG/KG, ON DAY ONE AND DAY EIGHT OF A 21 DAY CYCLE
     Route: 042
     Dates: start: 20180409, end: 20180416
  7. ONFI [Concomitant]
     Active Substance: CLOBAZAM
     Indication: EPILEPSY
     Dosage: UNK
     Dates: start: 20170630

REACTIONS (3)
  - Acute kidney injury [Recovered/Resolved]
  - Diarrhoea [Recovered/Resolved]
  - Dehydration [Recovered/Resolved]

NARRATIVE: CASE EVENT DATE: 20180508
